FAERS Safety Report 7394588-9 (Version None)
Quarter: 2011Q1

REPORT INFORMATION
  Report Type: 
  Country: None (occurrence: None)
  Receive Date: 20110324
  Receipt Date: 20110316
  Transmission Date: 20110831
  Serious: Yes (Other)
  Sender: FDA-Public Use
  Company Number: 2011SP011967

PATIENT
  Age: 18 Year
  Sex: Female
  Weight: 88.7 kg

DRUGS (1)
  1. IMPLANON [Suspect]
     Indication: CONTRACEPTION
     Dosage: 68 MG; ; SC
     Route: 058
     Dates: start: 20071001

REACTIONS (1)
  - BENIGN INTRACRANIAL HYPERTENSION [None]
